FAERS Safety Report 15816448 (Version 1)
Quarter: 2019Q1

REPORT INFORMATION
  Report Type: Spontaneous
  Country: US (occurrence: US)
  Receive Date: 20190113
  Receipt Date: 20190113
  Transmission Date: 20190417
  Serious: No
  Sender: FDA-Public Use
  Company Number: US-COOPERSURGICAL, INC.-US-2018CPS032888

PATIENT

DRUGS (6)
  1. SINGULAIR [Concomitant]
     Active Substance: MONTELUKAST SODIUM
     Indication: RHINITIS ALLERGIC
     Dosage: UNK
     Route: 065
  2. CONCERTA [Concomitant]
     Active Substance: METHYLPHENIDATE HYDROCHLORIDE
     Indication: BIPOLAR DISORDER
  3. PARAGARD T 380A [Suspect]
     Active Substance: COPPER
     Indication: CONTRACEPTION
     Dosage: UNK
     Route: 015
     Dates: start: 20180510, end: 20180821
  4. CONCERTA [Concomitant]
     Active Substance: METHYLPHENIDATE HYDROCHLORIDE
     Indication: ATTENTION DEFICIT/HYPERACTIVITY DISORDER
     Dosage: UNK
     Route: 065
  5. ZOLOFT [Concomitant]
     Active Substance: SERTRALINE HYDROCHLORIDE
     Indication: ATTENTION DEFICIT/HYPERACTIVITY DISORDER
     Dosage: UNK
     Route: 065
  6. ZOLOFT [Concomitant]
     Active Substance: SERTRALINE HYDROCHLORIDE
     Indication: BIPOLAR DISORDER

REACTIONS (1)
  - Device expulsion [Recovered/Resolved]

NARRATIVE: CASE EVENT DATE: 20180821
